FAERS Safety Report 8360718-5 (Version None)
Quarter: 2012Q2

REPORT INFORMATION
  Report Type: 
  Country: None (occurrence: None)
  Receive Date: 20120515
  Receipt Date: 20120501
  Transmission Date: 20120825
  Serious: Yes (Hospitalization, Other)
  Sender: FDA-Public Use
  Company Number: JP-UCBSA-015714

PATIENT
  Age: 73 Year
  Sex: Male

DRUGS (12)
  1. CANDESARTAN CILEXETIL [Concomitant]
     Dates: start: 20091224
  2. KETOPROFEN [Concomitant]
     Dosage: ADEQUATE DOSE
     Dates: start: 20100610
  3. CERTOLIZUMAB PEGOL [Suspect]
     Route: 058
     Dates: start: 20100304
  4. SODIUM RISEDRONATE HYDRATE [Concomitant]
     Dates: start: 20091224
  5. CERTOLIZUMAB PEGOL [Suspect]
     Route: 058
     Dates: start: 20100722
  6. METHOTREXATE [Concomitant]
     Dates: start: 20040901
  7. LASOPRAZOLE [Concomitant]
     Dates: start: 20100304
  8. CERTOLIZUMAB PEGOL [Suspect]
     Indication: RHEUMATOID ARTHRITIS
     Dosage: C87041
     Route: 058
     Dates: start: 20091112, end: 20100218
  9. ITOPRIDE HYDROCHLORIDE [Concomitant]
     Dates: start: 20100624
  10. LASOPRAZOLE [Concomitant]
     Dates: start: 20091211
  11. AMLODIPINE BESILATE [Concomitant]
     Dates: start: 20090701
  12. MELOXICAM [Concomitant]
     Dates: start: 20020508

REACTIONS (3)
  - BRONCHITIS [None]
  - COMPRESSION FRACTURE [None]
  - FOOT DEFORMITY [None]
